FAERS Safety Report 14271332 (Version 4)
Quarter: 2018Q1

REPORT INFORMATION
  Report Type: Spontaneous
  Country: GB (occurrence: GB)
  Receive Date: 20171211
  Receipt Date: 20180302
  Transmission Date: 20180508
  Serious: Yes (Other)
  Sender: FDA-Public Use
  Company Number: GB-SA-2017SA243716

PATIENT
  Sex: Female

DRUGS (3)
  1. IRBESARTAN. [Suspect]
     Active Substance: IRBESARTAN
     Indication: HYPERTENSION
     Dosage: STRENGTH:150 MG
     Route: 048
  2. MOTENS [Concomitant]
     Active Substance: LACIDIPINE
     Indication: PRODUCT USED FOR UNKNOWN INDICATION
     Route: 065
  3. IRBESARTAN. [Suspect]
     Active Substance: IRBESARTAN
     Indication: HYPERTENSION
     Dosage: TOOK 3 MS TABLETS(STRENGTH:75MG)
     Route: 048

REACTIONS (5)
  - Heart rate irregular [Unknown]
  - Drug dose omission [Unknown]
  - Arrhythmia [Unknown]
  - Product physical issue [Unknown]
  - Wrong drug administered [Unknown]
